APPROVED DRUG PRODUCT: LENALIDOMIDE
Active Ingredient: LENALIDOMIDE
Strength: 25MG
Dosage Form/Route: CAPSULE;ORAL
Application: A213405 | Product #002
Applicant: TORRENT PHARMACEUTICALS LTD
Approved: Feb 17, 2023 | RLD: No | RS: No | Type: DISCN